FAERS Safety Report 16795031 (Version 9)
Quarter: 2022Q2

REPORT INFORMATION
  Report Type: Spontaneous
  Country: US (occurrence: US)
  Receive Date: 20190911
  Receipt Date: 20220429
  Transmission Date: 20220721
  Serious: No
  Sender: FDA-Public Use
  Company Number: US-PFIZER INC-2019049629

PATIENT
  Age: 62 Year
  Sex: Female
  Weight: 80 kg

DRUGS (4)
  1. LYRICA [Suspect]
     Active Substance: PREGABALIN
     Indication: Neuralgia
     Dosage: AT A LOWER DOSE
  2. LYRICA [Suspect]
     Active Substance: PREGABALIN
     Indication: Fibromyalgia
     Dosage: 150 MG, 2X/DAY (3 IN THE MORNING AND 3 AT EVENING BY MOUTH) (BEFORE MEALS)
     Route: 048
  3. LYRICA [Suspect]
     Active Substance: PREGABALIN
     Indication: Pain
     Dosage: 100 MG, 2X/DAY (TAKE 3 CAPSULES (100 MG) BY MOUTH 2 TIMES PER DAY)
     Route: 048
  4. LYRICA [Suspect]
     Active Substance: PREGABALIN
     Indication: Back pain

REACTIONS (10)
  - Arthritis [Unknown]
  - Neuralgia [Unknown]
  - Condition aggravated [Unknown]
  - Weight increased [Unknown]
  - Tremor [Unknown]
  - Pain [Unknown]
  - Abnormal behaviour [Unknown]
  - Product label issue [Unknown]
  - Product prescribing issue [Unknown]
  - Loss of personal independence in daily activities [Unknown]
